FAERS Safety Report 5223163-7 (Version None)
Quarter: 2007Q1

REPORT INFORMATION
  Report Type: 
  Country: None (occurrence: None)
  Receive Date: 20070125
  Receipt Date: 20070119
  Transmission Date: 20070707
  Serious: Yes (Hospitalization)
  Sender: FDA-Public Use
  Company Number: E2020-00886-SPO-FR

PATIENT
  Age: 86 Year
  Sex: Female
  Weight: 70 kg

DRUGS (10)
  1. ARICEPT [Suspect]
     Indication: DEMENTIA ALZHEIMER'S TYPE
     Dosage: 10 MG, 1 IN 1 D, ORAL
     Route: 048
     Dates: start: 20041015, end: 20061030
  2. CORDARONE [Suspect]
     Dosage: 200 MG, ORAL
     Route: 048
     Dates: start: 20050515, end: 20061030
  3. CORDARONE [Suspect]
     Dosage: 200 MG, ORAL
     Route: 048
     Dates: start: 20061101
  4. ZOPICLONE (ZOPICLONE) [Concomitant]
  5. AMLODIPINE BESYLATE [Concomitant]
  6. FUROSEMIDE [Concomitant]
  7. PREVISCAN (FLUINDIONE) [Concomitant]
  8. OMEPRAZOLE [Concomitant]
  9. BUFLOMEDIL (BUFLOMEDIL) [Concomitant]
  10. POTASSIUM CHLORIDE [Concomitant]

REACTIONS (7)
  - BRADYCARDIA [None]
  - CEREBRAL HAEMATOMA [None]
  - DRUG INTERACTION [None]
  - FALL [None]
  - HEAD INJURY [None]
  - HEART SOUNDS ABNORMAL [None]
  - MALAISE [None]
